FAERS Safety Report 26076204 (Version 1)
Quarter: 2025Q4

REPORT INFORMATION
  Report Type: Spontaneous
  Country: US (occurrence: US)
  Receive Date: 20251121
  Receipt Date: 20251121
  Transmission Date: 20260117
  Serious: Yes (Hospitalization, Other)
  Sender: PFIZER
  Company Number: US-PFIZER INC-PV202500135626

PATIENT
  Age: 80 Year
  Sex: Female

DRUGS (3)
  1. ELRANATAMAB [Suspect]
     Active Substance: ELRANATAMAB
     Indication: Plasma cell myeloma
     Dosage: UNK
     Dates: start: 2023
  2. TAMOXIFEN [Concomitant]
     Active Substance: TAMOXIFEN
     Indication: Lobular breast carcinoma in situ
     Dosage: UNK
  3. ENTECAVIR [Concomitant]
     Active Substance: ENTECAVIR
     Indication: Hepatitis B
     Dosage: UNK

REACTIONS (5)
  - Cytomegalovirus viraemia [Recovering/Resolving]
  - Salmonellosis [Recovered/Resolved]
  - Cytomegalovirus chorioretinitis [Recovering/Resolving]
  - Pneumonia bacterial [Unknown]
  - Coronavirus pneumonia [Unknown]
